FAERS Safety Report 8098146-2 (Version None)
Quarter: 2012Q1

REPORT INFORMATION
  Report Type: 
  Country: None (occurrence: None)
  Receive Date: 20120128
  Receipt Date: 20110817
  Transmission Date: 20120608
  Serious: No
  Sender: FDA-Public Use
  Company Number: US-ABBOTT-11P-163-0847646-00

PATIENT
  Age: 32 Year
  Sex: Female

DRUGS (5)
  1. FOLIC ACID [Concomitant]
     Indication: PRODUCT USED FOR UNKNOWN INDICATION
     Dosage: DAILY
  2. ANTIBIOTICS [Suspect]
     Indication: BLOOD URINE PRESENT
     Dosage: 3 ROUNDS
  3. LEXAPRO [Concomitant]
     Indication: ANXIETY
  4. ANTIBIOTICS [Suspect]
     Indication: CRYSTALLURIA
  5. HUMIRA [Suspect]
     Indication: RHEUMATOID ARTHRITIS
     Dosage: INTERRUPTED
     Dates: start: 20041001, end: 20110601

REACTIONS (4)
  - BLOOD URINE PRESENT [None]
  - CRYSTALLURIA [None]
  - DIARRHOEA [None]
  - OEDEMA PERIPHERAL [None]
